FAERS Safety Report 4538901-6 (Version None)
Quarter: 2004Q4

REPORT INFORMATION
  Report Type: 
  Country: None (occurrence: None)
  Receive Date: 20041222
  Receipt Date: 20041201
  Transmission Date: 20050328
  Serious: Yes (Other)
  Sender: FDA-Public Use
  Company Number: USA041285018

PATIENT
  Age: 85 Year
  Sex: Female

DRUGS (1)
  1. FORTEO [Suspect]
     Dates: start: 20030601, end: 20041101

REACTIONS (3)
  - BREAST CANCER FEMALE [None]
  - BREAST PAIN [None]
  - PHARMACEUTICAL PRODUCT COMPLAINT [None]
